FAERS Safety Report 7199938-4 (Version None)
Quarter: 2010Q4

REPORT INFORMATION
  Report Type: 
  Country: None (occurrence: None)
  Receive Date: 20101228
  Receipt Date: 20101214
  Transmission Date: 20110411
  Serious: Yes (Other)
  Sender: FDA-Public Use
  Company Number: US-PFIZER INC-HQ7786728FEB2001

PATIENT
  Age: 57 Year
  Sex: Male

DRUGS (9)
  1. ENBREL [Suspect]
     Indication: RHEUMATOID ARTHRITIS
     Dosage: UNK
     Route: 065
  2. CELEBREX [Suspect]
     Indication: ARTHRITIS
     Dosage: UNK
     Route: 065
  3. MAVIK [Suspect]
     Indication: HYPERTENSION
     Dosage: 2 MG, 1X/DAY
     Route: 048
     Dates: start: 20010104, end: 20010111
  4. MAVIK [Suspect]
     Dosage: 3 MG, 1X/DAY
     Route: 048
     Dates: start: 20010111
  5. ARAVA [Suspect]
     Indication: RHEUMATOID ARTHRITIS
     Dosage: UNK
     Route: 065
  6. PREDNISONE [Suspect]
     Indication: RHEUMATOID ARTHRITIS
     Dosage: UNK
     Route: 065
  7. HYDROCHLOROTHIAZIDE [Concomitant]
  8. INSULIN ZINC SUSPENSION [Concomitant]
  9. INSULIN LISPRO [Concomitant]

REACTIONS (3)
  - CONDITION AGGRAVATED [None]
  - HYPERTENSION [None]
  - INHIBITORY DRUG INTERACTION [None]
